FAERS Safety Report 13956193 (Version 2)
Quarter: 2018Q4

REPORT INFORMATION
  Report Type: Report from Study
  Country: JP (occurrence: JP)
  Receive Date: 20170911
  Receipt Date: 20181119
  Transmission Date: 20190204
  Serious: Yes (Other)
  Sender: FDA-Public Use
  Company Number: JP-ACTELION-A-CH2015-126133

PATIENT
  Age: 69 Year
  Sex: Male

DRUGS (12)
  1. WARFARIN POTASSIUM [Suspect]
     Active Substance: WARFARIN POTASSIUM
     Dosage: UNK
     Route: 048
  2. ATENOLOL. [Concomitant]
     Active Substance: ATENOLOL
  3. SODIUM RABEPRAZOLE [Concomitant]
     Active Substance: RABEPRAZOLE SODIUM
  4. SPIRONOLACTONE. [Suspect]
     Active Substance: SPIRONOLACTONE
     Indication: OEDEMA
     Dosage: 25 MG, QD
     Route: 048
     Dates: start: 20150804, end: 20160202
  5. RIOCIGUAT. [Suspect]
     Active Substance: RIOCIGUAT
     Dosage: 4.5 MG, QD
     Route: 048
     Dates: start: 20170714
  6. REBAMIPIDE [Concomitant]
     Active Substance: REBAMIPIDE
  7. OPSUMIT [Suspect]
     Active Substance: MACITENTAN
     Indication: PULMONARY HYPERTENSION
     Dosage: 10 MG, QD
     Route: 048
     Dates: start: 20150623, end: 20170517
  8. AMLODIPINE BESILATE [Suspect]
     Active Substance: AMLODIPINE BESYLATE
     Indication: HYPERTENSION
     Dosage: 2.5 MG, QD
     Route: 048
     Dates: end: 20150818
  9. WARFARIN POTASSIUM [Suspect]
     Active Substance: WARFARIN POTASSIUM
     Indication: PULMONARY HYPERTENSION
     Dosage: 3.75 MG, QD
     Route: 048
     Dates: end: 20160914
  10. WARFARIN POTASSIUM [Suspect]
     Active Substance: WARFARIN POTASSIUM
     Dosage: 4 MG, QD
     Route: 048
     Dates: start: 20160915
  11. RIOCIGUAT. [Suspect]
     Active Substance: RIOCIGUAT
     Indication: PULMONARY HYPERTENSION
     Dosage: 7.5 MG, QD
     Route: 048
     Dates: start: 20141107, end: 20170517
  12. AMLODIPINE BESILATE [Suspect]
     Active Substance: AMLODIPINE BESYLATE
     Dosage: 1.25 MG, QD
     Route: 048
     Dates: start: 20150819, end: 20150831

REACTIONS (9)
  - Pulmonary endarterectomy [Unknown]
  - Ureterolithiasis [Recovered/Resolved]
  - Oedema [Recovering/Resolving]
  - Hypotension [Recovered/Resolved]
  - Gynaecomastia [Recovered/Resolved]
  - Haemoglobin decreased [Not Recovered/Not Resolved]
  - Haematocrit decreased [Not Recovered/Not Resolved]
  - Anaemia [Not Recovered/Not Resolved]
  - Red blood cell count decreased [Not Recovered/Not Resolved]

NARRATIVE: CASE EVENT DATE: 20150707
